FAERS Safety Report 9894304 (Version 2)
Quarter: 2015Q3

REPORT INFORMATION
  Report Type: Report from Study
  Country: GB (occurrence: GB)
  Receive Date: 20140213
  Receipt Date: 20150814
  Transmission Date: 20151125
  Serious: Yes (Hospitalization)
  Sender: FDA-Public Use
  Company Number: GB-GLAXOSMITHKLINE-Z0022090A

PATIENT
  Age: 72 Year
  Sex: Male
  Weight: 95.8 kg

DRUGS (2)
  1. GSK2256098 [Suspect]
     Active Substance: INVESTIGATIONAL PRODUCT
     Indication: NEOPLASM
     Dosage: 1000 MG, QD
     Route: 048
     Dates: start: 20140109
  2. TRAMETINIB [Suspect]
     Active Substance: TRAMETINIB
     Indication: NEOPLASM
     Dosage: 1 MG, QD
     Route: 048
     Dates: start: 20140109

REACTIONS (1)
  - Diarrhoea [Recovered/Resolved with Sequelae]

NARRATIVE: CASE EVENT DATE: 20140109
